FAERS Safety Report 9388117 (Version 1)
Quarter: 2013Q3

REPORT INFORMATION
  Report Type: Spontaneous
  Country: FR (occurrence: FR)
  Receive Date: 20130708
  Receipt Date: 20130708
  Transmission Date: 20140515
  Serious: Yes (Hospitalization)
  Sender: FDA-Public Use
  Company Number: FR-BAYER-2013-081466

PATIENT
  Age: 46 Year
  Sex: Female

DRUGS (3)
  1. IZILOX [Suspect]
     Indication: PRODUCTIVE COUGH
     Dosage: 400 MG, ONCE
     Route: 048
     Dates: start: 20130612, end: 20130612
  2. SOLUPRED [PREDNISOLONE] [Concomitant]
     Dosage: 20 MG, BID
  3. PYOSTACINE [Concomitant]

REACTIONS (8)
  - Diarrhoea [Recovered/Resolved]
  - Vomiting [Recovered/Resolved]
  - Urticaria [Recovered/Resolved]
  - Peripheral coldness [Recovered/Resolved]
  - Malaise [Recovered/Resolved]
  - Hypothermia [Recovered/Resolved]
  - Abdominal pain [Recovered/Resolved]
  - Hypotension [Recovered/Resolved]
